FAERS Safety Report 7073680 (Version 10)
Quarter: 2015Q2

REPORT INFORMATION
  Report Type: Report from Study
  Country: US (occurrence: US)
  Receive Date: 20051117
  Receipt Date: 20150504
  Transmission Date: 20150821
  Serious: Yes (Hospitalization)
  Sender: FDA-Public Use
  Company Number: US-BIOGENIDEC-2005BI020218

PATIENT
  Age: 62 Year
  Sex: Female
  Weight: 51 kg

DRUGS (3)
  1. AVONEX [Suspect]
     Active Substance: INTERFERON BETA-1A
     Indication: MULTIPLE SCLEROSIS
     Route: 030
     Dates: start: 20020918
  2. AVONEX [Suspect]
     Active Substance: INTERFERON BETA-1A
     Indication: MULTIPLE SCLEROSIS
     Route: 030
     Dates: start: 200602
  3. AVONEX [Suspect]
     Active Substance: INTERFERON BETA-1A
     Indication: MULTIPLE SCLEROSIS
     Route: 030

REACTIONS (24)
  - Hernia repair [Recovered/Resolved]
  - Device related infection [Recovered/Resolved]
  - Prescribed underdose [Not Recovered/Not Resolved]
  - Weight decreased [Not Recovered/Not Resolved]
  - Localised oedema [Not Recovered/Not Resolved]
  - Contrast media allergy [Unknown]
  - Urinary tract infection [Unknown]
  - Arthralgia [Not Recovered/Not Resolved]
  - Appendicectomy [Recovered/Resolved]
  - Hernia [Recovered/Resolved]
  - Scoliosis [Recovered/Resolved]
  - Lymphadenectomy [Recovered/Resolved]
  - Oophorectomy bilateral [Recovered/Resolved]
  - Influenza like illness [Unknown]
  - Back pain [Not Recovered/Not Resolved]
  - Pain [Recovered/Resolved]
  - Bladder disorder [Unknown]
  - Multiple sclerosis relapse [Unknown]
  - Colon cancer [Recovered/Resolved]
  - Renal disorder [Unknown]
  - Osteoarthritis [Not Recovered/Not Resolved]
  - Fatigue [Unknown]
  - Suture related complication [Recovered/Resolved]
  - Decreased appetite [Not Recovered/Not Resolved]

NARRATIVE: CASE EVENT DATE: 2005
